FAERS Safety Report 23828462 (Version 2)
Quarter: 2024Q2

REPORT INFORMATION
  Report Type: Spontaneous
  Country: JP (occurrence: JP)
  Receive Date: 20240508
  Receipt Date: 20240520
  Transmission Date: 20240715
  Serious: Yes (Hospitalization)
  Sender: FDA-Public Use
  Company Number: JP-SA-2024SA123375

PATIENT
  Age: 42 Year
  Sex: Male
  Weight: 98.8 kg

DRUGS (3)
  1. DOCETAXEL [Suspect]
     Active Substance: DOCETAXEL\DOCETAXEL ANHYDROUS
     Indication: Lung adenocarcinoma
     Dosage: 60 MG/M2, Q3W
     Route: 041
     Dates: start: 20240410
  2. CALONAL [Concomitant]
     Active Substance: ACETAMINOPHEN
     Indication: Bronchitis
     Dosage: UNK
     Route: 065
     Dates: start: 202404
  3. CALONAL [Concomitant]
     Active Substance: ACETAMINOPHEN
     Indication: Arthralgia
     Dosage: 500 MG, PRN
     Route: 065
     Dates: start: 20240413

REACTIONS (3)
  - Bronchitis [Recovered/Resolved]
  - Pyrexia [Recovered/Resolved]
  - Productive cough [Recovered/Resolved]

NARRATIVE: CASE EVENT DATE: 20240413
